FAERS Safety Report 8338830-6 (Version None)
Quarter: 2012Q2

REPORT INFORMATION
  Report Type: 
  Country: None (occurrence: None)
  Receive Date: 20120504
  Receipt Date: 20120426
  Transmission Date: 20120825
  Serious: Yes (Hospitalization, Disabling, Other)
  Sender: FDA-Public Use
  Company Number: US-MERCK-0809USA00723

PATIENT
  Age: 52 Year
  Sex: Female

DRUGS (3)
  1. LIPITOR [Concomitant]
     Route: 065
  2. FOSAMAX [Suspect]
     Route: 048
     Dates: end: 20080801
  3. FOSAMAX [Suspect]
     Indication: OSTEOPENIA
     Route: 048
     Dates: start: 19990101, end: 20080801

REACTIONS (11)
  - GINGIVAL DISORDER [None]
  - FALL [None]
  - VITAMIN D DEFICIENCY [None]
  - ROAD TRAFFIC ACCIDENT [None]
  - OSTEOPOROSIS [None]
  - DENTAL CARIES [None]
  - FEMUR FRACTURE [None]
  - SUBARACHNOID HAEMORRHAGE [None]
  - TOOTH DISORDER [None]
  - BLOOD CHOLESTEROL INCREASED [None]
  - ADVERSE EVENT [None]
